FAERS Safety Report 4650621-6 (Version None)
Quarter: 2005Q2

REPORT INFORMATION
  Report Type: 
  Country: None (occurrence: None)
  Receive Date: 20050429
  Receipt Date: 20050412
  Transmission Date: 20051028
  Serious: No
  Sender: FDA-Public Use
  Company Number: USA050495874

PATIENT
  Age: 44 Year
  Sex: Female
  Weight: 100 kg

DRUGS (9)
  1. CYMBALTA [Suspect]
     Dosage: 30 MG DAY
     Dates: start: 20041104, end: 20050309
  2. PROZAC [Suspect]
     Dosage: 20 MG DAY
  3. SYNTHROID [Concomitant]
  4. ATENOLOL [Concomitant]
  5. PREMARIN [Concomitant]
  6. DIAVAN [Concomitant]
  7. PERCOCET [Concomitant]
  8. ELAVIL [Concomitant]
  9. ROBAXIN [Concomitant]

REACTIONS (3)
  - ALANINE AMINOTRANSFERASE INCREASED [None]
  - ASPARTATE AMINOTRANSFERASE INCREASED [None]
  - BLOOD ALKALINE PHOSPHATASE INCREASED [None]
